FAERS Safety Report 5292091-3 (Version None)
Quarter: 2007Q2

REPORT INFORMATION
  Report Type: 
  Country: None (occurrence: None)
  Receive Date: 20070403
  Receipt Date: 20070319
  Transmission Date: 20071010
  Serious: Yes (Life-Threatening, Hospitalization, Other)
  Sender: FDA-Public Use
  Company Number: 2000002949-FJ

PATIENT
  Age: 20 Year
  Sex: Male
  Weight: 70 kg

DRUGS (8)
  1. PROGRAF [Suspect]
     Indication: STEM CELL TRANSPLANT
     Dosage: 1.9 MG, IV NOS
     Route: 042
     Dates: start: 19980604, end: 19980621
  2. PROGRAF [Suspect]
     Indication: STEM CELL TRANSPLANT
     Dosage: 1.9 MG, IV NOS
     Route: 042
     Dates: start: 19980709
  3. PREDNISOLONE [Suspect]
     Indication: STEM CELL TRANSPLANT
     Dosage: SEE IMAGE
     Route: 042
     Dates: start: 19980617, end: 19980617
  4. PREDNISOLONE [Suspect]
     Indication: STEM CELL TRANSPLANT
     Dosage: SEE IMAGE
     Route: 042
     Dates: start: 19980618, end: 19980716
  5. NEUTROGIN (LENOGRASTIM) [Concomitant]
  6. CARBENIN (BETAMIPRON, PANIPENEM) [Concomitant]
  7. HABEKACIN (ARBEKACIN) [Concomitant]
  8. DIFLUCAN [Concomitant]

REACTIONS (5)
  - BLOOD CREATININE INCREASED [None]
  - CONVULSION [None]
  - NEUROTOXICITY [None]
  - REVERSIBLE POSTERIOR LEUKOENCEPHALOPATHY SYNDROME [None]
  - THROMBOTIC MICROANGIOPATHY [None]
